FAERS Safety Report 24748822 (Version 1)
Quarter: 2024Q4

REPORT INFORMATION
  Report Type: Spontaneous
  Country: US (occurrence: US)
  Receive Date: 20241218
  Receipt Date: 20241218
  Transmission Date: 20250115
  Serious: No
  Sender: ABBVIE
  Company Number: US-ABBVIE-6045683

PATIENT
  Sex: Female

DRUGS (2)
  1. HUMIRA [Suspect]
     Active Substance: ADALIMUMAB
     Indication: Colitis ulcerative
     Dosage: UNKNOWN
     Route: 058
     Dates: end: 20230406
  2. RINVOQ [Suspect]
     Active Substance: UPADACITINIB
     Indication: Colitis ulcerative
     Dosage: FORM STRENGTH 30 MG
     Route: 048
     Dates: start: 20230427

REACTIONS (6)
  - Asthenia [Unknown]
  - Myalgia [Not Recovered/Not Resolved]
  - Lethargy [Recovering/Resolving]
  - Pain in extremity [Unknown]
  - Musculoskeletal pain [Unknown]
  - Rash [Unknown]

NARRATIVE: CASE EVENT DATE: 20241001
